FAERS Safety Report 7903068-0 (Version None)
Quarter: 2011Q4

REPORT INFORMATION
  Report Type: 
  Country: None (occurrence: None)
  Receive Date: 20111109
  Receipt Date: 20111101
  Transmission Date: 20120403
  Serious: Yes (Other)
  Sender: FDA-Public Use
  Company Number: DE-UCBSA-043725

PATIENT
  Age: 74 Year
  Sex: Female
  Weight: 80 kg

DRUGS (15)
  1. KEPPRA [Concomitant]
     Indication: EPILEPSY
     Dosage: IN THE MORNING AND EVENING
  2. VALSARTAN [Concomitant]
     Indication: HYPERTENSION
     Dosage: TOTAL DAILY DOSE : 160 MG
  3. DOXAZOSIN MESYLATE [Concomitant]
     Indication: HYPERTENSION
     Dosage: TOTAL DAILY DOSE : 8 MG
  4. LEVOTHYROXINE SODIUM [Concomitant]
     Indication: HYPOTHYROIDISM
     Dosage: TOTAL DAILY DOSE : 50 MCG
  5. VIMPAT [Suspect]
     Indication: EPILEPSY
     Dosage: IN MORNING AND EVENING
     Dates: start: 20110430
  6. VIMPAT [Suspect]
     Dosage: 100 MG IN MORNING AND 150 MG IN EVENING
     Dates: start: 20110421, end: 20110401
  7. VIMPAT [Suspect]
     Dosage: 50 MG IN MORNING AND 100 MG IN EVENING
     Dates: start: 20110318, end: 20110101
  8. VIMPAT [Suspect]
     Dosage: IN MORNING AND EVENING
     Dates: start: 20110304, end: 20110301
  9. HYDROCHLOROTHIAZIDE [Concomitant]
     Indication: HYPERTENSION
     Dosage: TOTAL DAILY DOSE : 25 MG
  10. VIMPAT [Suspect]
     Dosage: IN THE EVENING
     Dates: start: 20110225, end: 20110101
  11. GLIMEPIRID [Concomitant]
     Indication: DIABETES MELLITUS
     Dosage: TOTAL DAILY DOSE : 3 MG
  12. SITAGLIPTIN [Concomitant]
     Indication: DIABETES MELLITUS
     Dosage: TOTAL DAILY DOSE : 100 MG
  13. RAMIPRIL [Concomitant]
     Indication: HYPERTENSION
     Dosage: TOTAL DAILY DOSE : 10 MG
  14. METOPROLOL [Concomitant]
     Indication: HYPERTENSION
     Dosage: TOTAL DAILY DOSE : 95 MG
  15. VIMPAT [Suspect]
     Dosage: 100 MG IN MORNING AND 100 MG IN EVENING
     Dates: start: 20110401, end: 20110401

REACTIONS (1)
  - MENINGIOMA [None]
